FAERS Safety Report 11093677 (Version 1)
Quarter: 2015Q2

REPORT INFORMATION
  Report Type: Report from Study
  Country: JP (occurrence: JP)
  Receive Date: 20150506
  Receipt Date: 20150506
  Transmission Date: 20150821
  Serious: Yes (Hospitalization)
  Sender: FDA-Public Use
  Company Number: JP-SA-2015SA024289

PATIENT
  Age: 81 Year
  Sex: Male
  Weight: 61 kg

DRUGS (11)
  1. HERBESSER [Concomitant]
     Active Substance: DILTIAZEM HYDROCHLORIDE
     Route: 048
  2. MICARDIS [Concomitant]
     Active Substance: TELMISARTAN
     Route: 048
     Dates: end: 20140125
  3. WARFARIN [Concomitant]
     Active Substance: WARFARIN
     Route: 048
  4. ADETPHOS [Concomitant]
     Active Substance: ADENOSINE TRIPHOSPHATE
     Route: 048
     Dates: end: 20140125
  5. PLAVIX [Suspect]
     Active Substance: CLOPIDOGREL BISULFATE
     Indication: PERIPHERAL ARTERIAL OCCLUSIVE DISEASE
     Route: 048
     Dates: start: 20130411
  6. HOKUNALIN [Concomitant]
     Active Substance: TULOBUTEROL
     Route: 061
  7. EDIROL [Concomitant]
     Active Substance: ELDECALCITOL
     Route: 048
     Dates: end: 20140125
  8. BONOTEO [Concomitant]
     Active Substance: MINODRONIC ACID
     Route: 048
     Dates: end: 20140125
  9. METHYCOBAL [Concomitant]
     Active Substance: METHYLCOBALAMIN
     Route: 048
     Dates: end: 20150125
  10. LASIX [Concomitant]
     Active Substance: FUROSEMIDE
     Route: 048
  11. ALDACTONE [Concomitant]
     Active Substance: SPIRONOLACTONE
     Route: 048
     Dates: end: 20140125

REACTIONS (4)
  - Pneumonia [Recovering/Resolving]
  - Prerenal failure [Recovered/Resolved]
  - Gastritis erosive [Recovered/Resolved]
  - Pneumonia [Recovering/Resolving]

NARRATIVE: CASE EVENT DATE: 20140125
